FAERS Safety Report 6239784-9 (Version None)
Quarter: 2009Q2

REPORT INFORMATION
  Report Type: 
  Country: None (occurrence: None)
  Receive Date: 20090623
  Receipt Date: 20090609
  Transmission Date: 20091009
  Serious: Yes (Death)
  Sender: FDA-Public Use
  Company Number: US-RANBAXY-2009RR-24816

PATIENT
  Age: 27 Year
  Sex: Female

DRUGS (9)
  1. DIAZEPAM [Suspect]
  2. HYDROCODONE BITARTRATE [Suspect]
     Indication: MUSCULOSKELETAL PAIN
     Dosage: 10 MG, QID
     Route: 048
  3. HYDROCODONE BITARTRATE [Suspect]
     Dosage: 7.5 MG, QID
  4. MORPHINE SULFATE [Suspect]
     Indication: MUSCULOSKELETAL PAIN
     Dosage: 30 MG, QD
  5. METHADONE [Suspect]
     Indication: MUSCULOSKELETAL PAIN
     Dosage: 10 MG, QD
  6. NORDIAZEPAM [Suspect]
  7. DOXEPIN HCL [Suspect]
  8. TEMAZEPAM [Suspect]
  9. OXYCODONE HCL [Suspect]
     Indication: MUSCULOSKELETAL PAIN
     Dosage: 5 MG, QID

REACTIONS (3)
  - DEATH [None]
  - DRUG INTERACTION [None]
  - OVERDOSE [None]
